FAERS Safety Report 14858952 (Version 3)
Quarter: 2021Q2

REPORT INFORMATION
  Report Type: Spontaneous
  Country: US (occurrence: US)
  Receive Date: 20180508
  Receipt Date: 20210610
  Transmission Date: 20210716
  Serious: Yes (Disabling)
  Sender: FDA-Public Use
  Company Number: US-TEVA-823474USA

PATIENT
  Age: 66 Year
  Sex: Female
  Weight: 62.65 kg

DRUGS (16)
  1. NORVASC [Concomitant]
     Active Substance: AMLODIPINE BESYLATE
     Route: 048
     Dates: start: 2007, end: 201403
  2. ONDANSETRON HCL [Concomitant]
     Active Substance: ONDANSETRON HYDROCHLORIDE
     Dosage: PRN
     Route: 048
  3. HYDROCHLOROTHIAZIDE. [Concomitant]
     Active Substance: HYDROCHLOROTHIAZIDE
     Route: 048
  4. ZOCOR [Concomitant]
     Active Substance: SIMVASTATIN
     Route: 048
     Dates: start: 2013, end: 2014
  5. CYCLOPHOSPHAMIDE BAXTER [Suspect]
     Active Substance: CYCLOPHOSPHAMIDE
     Dosage: AT 600 MG/M2, DAILY INTERMITTENT OVER 30 MIN FOR 1 DAY IN NS 250ML AT THE RATE OF 500,000 ML/HR
     Route: 042
     Dates: start: 20140113, end: 20140317
  6. FAMOTIDINE. [Concomitant]
     Active Substance: FAMOTIDINE
     Dosage: DAILY INTERMITTENT OVER 20 MIN FOR 1 DAY IN NS 50ML AT THE RATE OF 156.00 ML/HR
     Route: 042
     Dates: start: 20140113
  7. PALONOSETRON HCL [Concomitant]
     Active Substance: PALONOSETRON HYDROCHLORIDE
     Dosage: DAILY INTERMITTENT OVER 20 MIN FOR 1 DAY IN NS 50ML AT THE RATE OF 165.00 ML/HR
     Route: 042
     Dates: start: 20140113
  8. MULTIVITAMIN [Concomitant]
     Active Substance: VITAMINS
     Route: 048
     Dates: start: 201403
  9. DOCETAXEL. [Suspect]
     Active Substance: DOCETAXEL
     Dosage: 80MG/4ML, EVERY 3 WEEKS, 4 CYCLES
     Route: 042
     Dates: start: 20140115, end: 20140317
  10. CYCLOPHOSPHAMIDE BAXTER [Suspect]
     Active Substance: CYCLOPHOSPHAMIDE
     Indication: INVASIVE DUCTAL BREAST CARCINOMA
     Route: 042
  11. DIPHENHYDRAMINE HCL [Concomitant]
     Active Substance: DIPHENHYDRAMINE HYDROCHLORIDE
     Dosage: DAILY INTERMITTENT OVER 20MIN FOR 1 DAY IN NS 50ML AT THE RATE OF 153.00 ML/HR
     Route: 042
  12. COENZYME Q10 [Concomitant]
     Active Substance: DIETARY SUPPLEMENT\UBIDECARENONE
     Route: 048
  13. DOCETAXEL. [Suspect]
     Active Substance: DOCETAXEL
     Indication: INVASIVE DUCTAL BREAST CARCINOMA
     Dosage: 20MG/1ML, EVERY 3 WEEKS, 4 CYCLES
     Route: 042
     Dates: start: 20140115, end: 20140317
  14. ASPIRIN. [Concomitant]
     Active Substance: ASPIRIN
     Route: 048
  15. DEXAMETHASONE SODIUM PHOSPHATE. [Concomitant]
     Active Substance: DEXAMETHASONE SODIUM PHOSPHATE
     Dosage: DAILY INTERMITTENT OVER 20MIN FOR 1 DAY IN NS 50ML AT THE RATE OF 153.00 ML/HR
     Route: 042
     Dates: start: 20140113
  16. PROCHLORPERAZINE MALEATE. [Concomitant]
     Active Substance: PROCHLORPERAZINE MALEATE
     Dosage: PRN
     Route: 048

REACTIONS (7)
  - Hair colour changes [Not Recovered/Not Resolved]
  - Anaemia [Unknown]
  - Madarosis [Not Recovered/Not Resolved]
  - Hair texture abnormal [Not Recovered/Not Resolved]
  - Fatigue [Recovering/Resolving]
  - Alopecia areata [Not Recovered/Not Resolved]
  - Decreased appetite [Unknown]

NARRATIVE: CASE EVENT DATE: 2014
